FAERS Safety Report 23889842 (Version 3)
Quarter: 2024Q4

REPORT INFORMATION
  Report Type: Report from Study
  Country: JP (occurrence: JP)
  Receive Date: 20240523
  Receipt Date: 20241121
  Transmission Date: 20250115
  Serious: Yes (Other)
  Sender: ROCHE
  Company Number: JP-CHUGAI-2024015984

PATIENT
  Age: 76 Year
  Sex: Female
  Weight: 62 kg

DRUGS (4)
  1. TECENTRIQ [Suspect]
     Active Substance: ATEZOLIZUMAB
     Indication: Triple negative breast cancer
     Dosage: 840 MILLIGRAM
     Route: 065
     Dates: start: 20240108, end: 20240108
  2. TECENTRIQ [Suspect]
     Active Substance: ATEZOLIZUMAB
     Dosage: 840 MILLIGRAM
     Route: 065
     Dates: start: 20240212
  3. PACLITAXEL [Suspect]
     Active Substance: PACLITAXEL
     Indication: Triple negative breast cancer
     Dosage: 75 MILLIGRAM/SQ. METER
     Route: 042
     Dates: start: 20240108, end: 20240108
  4. PACLITAXEL [Suspect]
     Active Substance: PACLITAXEL
     Dosage: 50 MILLIGRAM/SQ. METER
     Route: 042
     Dates: start: 20240212

REACTIONS (1)
  - Neutropenia [Recovered/Resolved]

NARRATIVE: CASE EVENT DATE: 20240122
